FAERS Safety Report 6601357-3 (Version None)
Quarter: 2010Q1

REPORT INFORMATION
  Report Type: 
  Country: None (occurrence: None)
  Receive Date: 20100225
  Receipt Date: 20100216
  Transmission Date: 20100710
  Serious: Yes (Other)
  Sender: FDA-Public Use
  Company Number: US-PFIZER INC-2010021139

PATIENT
  Age: 14 Year

DRUGS (1)
  1. VIBRAMYCIN [Suspect]
     Dosage: UNIT DOSE: UNKNOWN;

REACTIONS (2)
  - ANXIETY [None]
  - DEPRESSION [None]
